FAERS Safety Report 9742153 (Version 1)
Quarter: 2013Q4

REPORT INFORMATION
  Report Type: Report from Study
  Country: NL (occurrence: NL)
  Receive Date: 20131210
  Receipt Date: 20131210
  Transmission Date: 20140711
  Serious: Yes (Other)
  Sender: FDA-Public Use
  Company Number: PHHY2013NL141423

PATIENT
  Sex: Male
  Weight: 65 kg

DRUGS (8)
  1. SANDOSTATIN LAR [Suspect]
     Indication: PANCREATIC NEUROENDOCRINE TUMOUR
     Dosage: 20 MG, ONCE EVERY 2 WEEKS
  2. AFINITOR [Suspect]
     Dosage: UNK UKN, UNK
  3. OCTREOTIDE [Suspect]
     Dosage: UNK UKN, UNK
  4. PANTOPRAZOLE [Concomitant]
     Dosage: UNK UKN, UNK
  5. CARBASALAATCALCIUM [Concomitant]
     Dosage: UNK UKN, UNK
  6. FUROSEMIDE [Concomitant]
     Dosage: UNK UKN, UNK
  7. TRAMADOL [Concomitant]
     Dosage: UNK UKN, UNK
  8. PRIMPERAN [Concomitant]
     Dosage: UNK UKN, UNK

REACTIONS (2)
  - Cardiac failure [Not Recovered/Not Resolved]
  - Oedema [Not Recovered/Not Resolved]
